FAERS Safety Report 13263169 (Version 2)
Quarter: 2019Q2

REPORT INFORMATION
  Report Type: Spontaneous
  Country: FI (occurrence: FI)
  Receive Date: 20170223
  Receipt Date: 20190429
  Transmission Date: 20190711
  Serious: Yes (Hospitalization, Other)
  Sender: FDA-Public Use
  Company Number: FI-ACCORD-048472

PATIENT
  Age: 46 Year
  Sex: Female

DRUGS (9)
  1. OLANZAPINE. [Suspect]
     Active Substance: OLANZAPINE
     Indication: PRODUCT USED FOR UNKNOWN INDICATION
  2. VALPROIC ACID. [Concomitant]
     Active Substance: VALPROIC ACID
  3. CLOZAPINE. [Suspect]
     Active Substance: CLOZAPINE
     Indication: PRODUCT USED FOR UNKNOWN INDICATION
  4. LYNESTRENOL/LYNESTRENOL-S [Concomitant]
  5. BIPERIDEN [Concomitant]
     Active Substance: BIPERIDEN
  6. MACROGOL/MACROGOL STEARATE [Concomitant]
  7. DIAZEPAM. [Concomitant]
     Active Substance: DIAZEPAM
  8. LEVETIRACETAM. [Concomitant]
     Active Substance: LEVETIRACETAM
  9. TEMAZEPAM. [Concomitant]
     Active Substance: TEMAZEPAM

REACTIONS (2)
  - Hypoglycaemia [Recovered/Resolved]
  - Hypothermia [Recovered/Resolved]
